FAERS Safety Report 15868632 (Version 4)
Quarter: 2019Q2

REPORT INFORMATION
  Report Type: Report from Study
  Country: JP (occurrence: JP)
  Receive Date: 20190125
  Receipt Date: 20190405
  Transmission Date: 20190711
  Serious: Yes (Life-Threatening)
  Sender: FDA-Public Use
  Company Number: JP-EISAI MEDICAL RESEARCH-EC-2019-051034

PATIENT
  Age: 58 Year
  Sex: Male
  Weight: 38 kg

DRUGS (19)
  1. FYCOMPA [Suspect]
     Active Substance: PERAMPANEL
     Route: 048
     Dates: start: 20190113
  2. FYCOMPA [Suspect]
     Active Substance: PERAMPANEL
     Route: 048
     Dates: start: 20180704, end: 20180731
  3. ROZEREM [Concomitant]
     Active Substance: RAMELTEON
  4. FYCOMPA [Suspect]
     Active Substance: PERAMPANEL
     Route: 048
     Dates: start: 20180618, end: 20180626
  5. FYCOMPA [Suspect]
     Active Substance: PERAMPANEL
     Route: 048
     Dates: start: 20180801, end: 20180924
  6. RIVOTRIL [Concomitant]
     Active Substance: CLONAZEPAM
  7. FYCOMPA [Suspect]
     Active Substance: PERAMPANEL
     Indication: PARTIAL SEIZURES
     Route: 048
     Dates: start: 20180611, end: 20180617
  8. PIRACETAM [Concomitant]
     Active Substance: PIRACETAM
  9. FYCOMPA [Suspect]
     Active Substance: PERAMPANEL
     Route: 048
     Dates: start: 20180925, end: 20181015
  10. LEVETIRACETAM. [Concomitant]
     Active Substance: LEVETIRACETAM
  11. FYCOMPA [Suspect]
     Active Substance: PERAMPANEL
     Route: 048
     Dates: start: 20180627, end: 20180703
  12. FYCOMPA [Suspect]
     Active Substance: PERAMPANEL
     Route: 048
     Dates: start: 20181016, end: 20190112
  13. E KEPPRA [Concomitant]
     Active Substance: LEVETIRACETAM
  14. PRIMIDONE. [Concomitant]
     Active Substance: PRIMIDONE
  15. ESCRE [Concomitant]
     Active Substance: CHLORAL HYDRATE
  16. CLONAZEPAM. [Concomitant]
     Active Substance: CLONAZEPAM
  17. DEPAS (ETIZOLAM) [Concomitant]
     Active Substance: ETIZOLAM
  18. DAIKENCHUTO [Concomitant]
     Active Substance: HERBALS
  19. LAXOBERON [Concomitant]
     Active Substance: SODIUM PICOSULFATE

REACTIONS (1)
  - Cardio-respiratory arrest [Recovered/Resolved]

NARRATIVE: CASE EVENT DATE: 20190111
